FAERS Safety Report 5338221-6 (Version None)
Quarter: 2007Q2

REPORT INFORMATION
  Report Type: 
  Country: None (occurrence: None)
  Receive Date: 20070329
  Receipt Date: 20070227
  Transmission Date: 20071010
  Serious: Yes (Other)
  Sender: FDA-Public Use
  Company Number: US-JNJFOC-20070101675

PATIENT

DRUGS (1)
  1. ULTRAM ER [Suspect]
     Indication: PAIN
     Dosage: 100 MG, 1 IN 2 DAY, ORAL
     Route: 048

REACTIONS (1)
  - GRAND MAL CONVULSION [None]
